FAERS Safety Report 8916698 (Version 2)
Quarter: 2012Q4

REPORT INFORMATION
  Report Type: 
  Country: US (occurrence: US)
  Receive Date: 20121120
  Receipt Date: 20121231
  Transmission Date: 20130627
  Serious: Yes (Death, Hospitalization)
  Sender: FDA-Public Use
  Company Number: US-CELGENEUS-163-21880-12053140

PATIENT
  Age: 93 Year
  Sex: Female

DRUGS (6)
  1. REVLIMID [Suspect]
     Indication: MULTIPLE MYELOMA
     Dosage: 25 Milligram
     Route: 048
     Dates: start: 201008, end: 20120616
  2. REVLIMID [Suspect]
     Dosage: 15 Milligram
     Route: 048
     Dates: start: 20120621, end: 20120720
  3. DEXAMETHASONE [Concomitant]
     Indication: MULTIPLE MYELOMA
     Dosage: 20 Milligram
     Route: 048
     Dates: start: 20120617, end: 20120720
  4. PACKED RED BLOOD CELLS [Concomitant]
     Indication: TRANSFUSION
     Dosage: 1 Unit
     Route: 041
     Dates: start: 20120622, end: 20120622
  5. PACKED RED BLOOD CELLS [Concomitant]
     Dosage: 1 Unit
     Route: 041
     Dates: start: 20120525, end: 20120525
  6. ZOMETA [Concomitant]
     Indication: DRUG USE FOR UNKNOWN INDICATION
     Route: 041
     Dates: start: 20120525

REACTIONS (3)
  - Plasma cell myeloma [Fatal]
  - Cardiac failure [Not Recovered/Not Resolved]
  - Urinary tract infection bacterial [Recovered/Resolved]
